FAERS Safety Report 7031648-6 (Version None)
Quarter: 2010Q4

REPORT INFORMATION
  Report Type: 
  Country: None (occurrence: None)
  Receive Date: 20101006
  Receipt Date: 20101006
  Transmission Date: 20110411
  Serious: Yes (Life-Threatening, Disabling, Other)
  Sender: FDA-Public Use
  Company Number: None

PATIENT
  Age: 5 Year
  Sex: Female
  Weight: 14 kg

DRUGS (4)
  1. CREON 6000 U SOLVAY [Suspect]
     Indication: CYSTIC FIBROSIS PANCREATIC
     Dosage: 10 CAPS OF FORMULA TWICE A DAY OTHER
     Route: 050
     Dates: start: 20100401, end: 20101002
  2. CREON 6000 U SOLVAY [Suspect]
     Indication: PANCREATIC INSUFFICIENCY
     Dosage: 10 CAPS OF FORMULA TWICE A DAY OTHER
     Route: 050
     Dates: start: 20100401, end: 20101002
  3. LIPASE 19,000 U PROTEASE [Suspect]
     Indication: CYSTIC FIBROSIS PANCREATIC
     Dosage: 2 CANS OF FORMULA TWICE A DAY OTHER
     Route: 050
     Dates: start: 20100401, end: 20101002
  4. LIPASE 19,000 U PROTEASE [Suspect]
     Indication: PANCREATIC INSUFFICIENCY
     Dosage: 2 CANS OF FORMULA TWICE A DAY OTHER
     Route: 050
     Dates: start: 20100401, end: 20101002

REACTIONS (7)
  - ABDOMINAL PAIN [None]
  - DIARRHOEA [None]
  - ENZYME ACTIVITY DECREASED [None]
  - FLATULENCE [None]
  - GASTRIC DISORDER [None]
  - GASTRIC INFECTION [None]
  - PRODUCT PACKAGING ISSUE [None]
